FAERS Safety Report 17210643 (Version 1)
Quarter: 2019Q4

REPORT INFORMATION
  Report Type: Spontaneous
  Country: US (occurrence: US)
  Receive Date: 20191227
  Receipt Date: 20191227
  Transmission Date: 20200122
  Serious: No
  Sender: FDA-Public Use
  Company Number: US-009507513-1912USA011727

PATIENT
  Sex: Male

DRUGS (1)
  1. INTRON A [Suspect]
     Active Substance: INTERFERON ALFA-2B
     Dosage: STRENGTH: 50 MU, DOSE/FREQUENCY: 50 MU OTHER
     Route: 043
     Dates: start: 20130623

REACTIONS (2)
  - Incorrect route of product administration [Unknown]
  - Adverse event [Not Recovered/Not Resolved]
